FAERS Safety Report 8212661-X (Version None)
Quarter: 2012Q1

REPORT INFORMATION
  Report Type: 
  Country: None (occurrence: None)
  Receive Date: 20120315
  Receipt Date: 20120308
  Transmission Date: 20120608
  Serious: Yes (Other)
  Sender: FDA-Public Use
  Company Number: US-AMGEN-USASP2011024938

PATIENT
  Age: 76 Year
  Sex: Female
  Weight: 49.887 kg

DRUGS (4)
  1. ANALGESICS [Concomitant]
  2. PROLIA [Suspect]
     Indication: OSTEOPOROSIS POSTMENOPAUSAL
     Dosage: UNK
     Dates: start: 20110101
  3. H2 BLOCKER [Concomitant]
  4. CORTICOSTEROIDS [Concomitant]

REACTIONS (1)
  - FRACTURE [None]
